FAERS Safety Report 6749872-6 (Version None)
Quarter: 2010Q2

REPORT INFORMATION
  Report Type: 
  Country: None (occurrence: None)
  Receive Date: 20100601
  Receipt Date: 20100518
  Transmission Date: 20101027
  Serious: Yes (Other)
  Sender: FDA-Public Use
  Company Number: AU-ELI_LILLY_AND_COMPANY-AU201005004276

PATIENT
  Age: 50 Year
  Sex: Male

DRUGS (2)
  1. EFFIENT [Suspect]
     Dosage: 10 MG, UNKNOWN
     Route: 065
     Dates: start: 20090101
  2. CLOPIDOGREL [Concomitant]
     Dosage: UNK, UNKNOWN
     Route: 065

REACTIONS (1)
  - TRANSIENT ISCHAEMIC ATTACK [None]
